FAERS Safety Report 10022686 (Version 1)
Quarter: 2014Q1

REPORT INFORMATION
  Report Type: Spontaneous
  Country: US (occurrence: US)
  Receive Date: 20140319
  Receipt Date: 20140319
  Transmission Date: 20141002
  Serious: No
  Sender: FDA-Public Use
  Company Number: US-PFIZER INC-2014076728

PATIENT
  Age: 62 Year
  Sex: Male
  Weight: 66 kg

DRUGS (2)
  1. EFFEXOR XR [Suspect]
     Indication: DEPRESSION
     Dosage: 225 MG, (TAKING ONE CAPSULE OF 150MG AND ONE CAPSULE OF 75MG AT A TIME) 1X/DAY
     Route: 048
  2. KLONOPIN [Concomitant]
     Dosage: 1 MG, 1X/DAY

REACTIONS (7)
  - Cardiac disorder [Unknown]
  - Arthralgia [Unknown]
  - Anaemia [Unknown]
  - Weight decreased [Unknown]
  - Product quality issue [Unknown]
  - Heart rate increased [Unknown]
  - Dizziness [Unknown]
